FAERS Safety Report 8522864 (Version 2)
Quarter: 2012Q4

REPORT INFORMATION
  Report Type: 
  Country: US (occurrence: US)
  Receive Date: 20120420
  Receipt Date: 20120911
  Transmission Date: 20130627
  Serious: Yes (Death, Hospitalization)
  Sender: FDA-Public Use
  Company Number: US-AMGEN-USASP2012023818

PATIENT
  Age: 82 Year
  Sex: Male
  Weight: 58.46 kg

DRUGS (1)
  1. ARANESP [Suspect]
     Indication: PRODUCT USED FOR UNKNOWN INDICATION
     Dosage: 300 mug, q2wk
     Route: 058
     Dates: start: 20111027, end: 20120212

REACTIONS (2)
  - Death [Fatal]
  - Hospitalisation [Unknown]
